FAERS Safety Report 9861133 (Version 2)
Quarter: 2014Q2

REPORT INFORMATION
  Report Type: Spontaneous
  Country: IT (occurrence: None)
  Receive Date: 20140130
  Receipt Date: 20140423
  Transmission Date: 20141212
  Serious: Yes (Hospitalization)
  Sender: FDA-Public Use
  Company Number: 2014AP000781

PATIENT
  Age: 40 Year
  Sex: Female

DRUGS (6)
  1. PAROXETINE [Suspect]
     Indication: DRUG ABUSE
     Dosage: 1120 MG, TOTAL, PO
     Route: 048
     Dates: start: 20131216, end: 20131216
  2. PAROXETINE [Suspect]
     Indication: BIPOLAR DISORDER
     Dosage: 1120 MG, TOTAL, PO
     Route: 048
     Dates: start: 20131216, end: 20131216
  3. SODIUM VALPROATE (VALPROATE SODIUM) [Suspect]
     Indication: DRUG ABUSE
     Dosage: 12500 MG, TOTAL, PO
     Route: 048
     Dates: start: 20131216, end: 20131216
  4. ARIPIPRAZOLE [Suspect]
     Indication: DRUG ABUSE
     Dosage: 60 MG, TOTAL, PO
     Dates: start: 20131216, end: 20131216
  5. DELORAZEPAM [Suspect]
     Indication: DRUG ABUSE
     Dosage: 100 MG, TOTAL, PO
     Route: 048
     Dates: start: 20131216, end: 20131216
  6. DELORAZEPAM [Suspect]
     Indication: SLEEP DISORDER
     Dosage: 100 MG, TOTAL, PO
     Route: 048
     Dates: start: 20131216, end: 20131216

REACTIONS (5)
  - Abdominal pain [None]
  - Sopor [None]
  - Drug abuse [None]
  - Faecal incontinence [None]
  - Urinary incontinence [None]
